FAERS Safety Report 18277735 (Version 1)
Quarter: 2020Q3

REPORT INFORMATION
  Report Type: Spontaneous
  Country: IT (occurrence: IT)
  Receive Date: 20200917
  Receipt Date: 20200917
  Transmission Date: 20201103
  Serious: Yes (Other)
  Sender: FDA-Public Use
  Company Number: IT-MYLANLABS-2020M1078212

PATIENT
  Age: 52 Year
  Sex: Male

DRUGS (1)
  1. EVEROLIMUS. [Suspect]
     Active Substance: EVEROLIMUS
     Indication: ERDHEIM-CHESTER DISEASE
     Dosage: 0.75 MG, BID (TITRATED TO REACH BLOOD LEVELS OF 8?12 NG/ML)
     Route: 065

REACTIONS (3)
  - Type 2 diabetes mellitus [Unknown]
  - Product use in unapproved indication [Unknown]
  - Off label use [Unknown]
